FAERS Safety Report 11822504 (Version 1)
Quarter: 2015Q4

REPORT INFORMATION
  Report Type: Spontaneous
  Country: US (occurrence: US)
  Receive Date: 20151210
  Receipt Date: 20151210
  Transmission Date: 20160305
  Serious: Yes (Hospitalization)
  Sender: FDA-Public Use
  Company Number: US-JNJFOC-20150604781

PATIENT
  Sex: Male

DRUGS (9)
  1. IMBRUVICA [Suspect]
     Active Substance: IBRUTINIB
     Indication: LYMPHOMA
     Route: 048
     Dates: start: 20150220, end: 2015
  2. GABAPENTIN. [Concomitant]
     Active Substance: GABAPENTIN
  3. AMLODIPINE [Concomitant]
     Active Substance: AMLODIPINE BESYLATE
  4. LISINOPRIL. [Concomitant]
     Active Substance: LISINOPRIL
  5. ALLOPURINOL. [Concomitant]
     Active Substance: ALLOPURINOL
  6. LEVAQUIN [Concomitant]
     Active Substance: LEVOFLOXACIN
  7. VORICONAZOLE. [Concomitant]
     Active Substance: VORICONAZOLE
  8. MEPRON [Concomitant]
     Active Substance: ATOVAQUONE
  9. ATENOLOL. [Concomitant]
     Active Substance: ATENOLOL

REACTIONS (1)
  - Metastases to central nervous system [Unknown]

NARRATIVE: CASE EVENT DATE: 2015
